FAERS Safety Report 8209486-8 (Version None)
Quarter: 2012Q1

REPORT INFORMATION
  Report Type: 
  Country: None (occurrence: None)
  Receive Date: 20120314
  Receipt Date: 20120313
  Transmission Date: 20120608
  Serious: Yes (Other)
  Sender: FDA-Public Use
  Company Number: US-PFIZER INC-2012066478

PATIENT
  Sex: Male
  Weight: 118 kg

DRUGS (3)
  1. METOPROLOL [Concomitant]
     Dosage: UNK
  2. ZOCOR [Concomitant]
     Dosage: UNK
  3. CHANTIX [Suspect]
     Indication: SMOKING CESSATION THERAPY
     Dosage: UNK
     Route: 048
     Dates: start: 20120101, end: 20120226

REACTIONS (5)
  - DYSGEUSIA [None]
  - INSOMNIA [None]
  - EAR INFECTION [None]
  - PRURITUS [None]
  - TEMPERATURE INTOLERANCE [None]
